FAERS Safety Report 6295098-2 (Version None)
Quarter: 2009Q3

REPORT INFORMATION
  Report Type: 
  Country: None (occurrence: None)
  Receive Date: 20090803
  Receipt Date: 20090724
  Transmission Date: 20100115
  Serious: Yes (Hospitalization)
  Sender: FDA-Public Use
  Company Number: US-ASTRAZENECA-2009SE06071

PATIENT
  Sex: Male

DRUGS (2)
  1. METOPROLOL TARTRATE [Suspect]
     Route: 048
  2. TOPROL-XL [Suspect]
     Route: 048
     Dates: start: 19990101

REACTIONS (14)
  - AMNESIA [None]
  - ARTHRALGIA [None]
  - BLADDER CANCER STAGE IV [None]
  - BLADDER NEOPLASM SURGERY [None]
  - CARDIAC DISORDER [None]
  - CHEST PAIN [None]
  - DYSPEPSIA [None]
  - DYSPNOEA [None]
  - EMPHYSEMA [None]
  - HEADACHE [None]
  - INTERVERTEBRAL DISC PROTRUSION [None]
  - MYELOPATHY [None]
  - SEPSIS [None]
  - SINUS DISORDER [None]
